FAERS Safety Report 4329412-1 (Version None)
Quarter: 2004Q1

REPORT INFORMATION
  Report Type: 
  Country: None (occurrence: None)
  Receive Date: 20040319
  Receipt Date: 20040212
  Transmission Date: 20041129
  Serious: No
  Sender: FDA-Public Use
  Company Number: US-JNJFOC-20040203631

PATIENT
  Age: 24 Year
  Sex: Female
  Weight: 55.7924 kg

DRUGS (4)
  1. ORTHO EVRA [Suspect]
     Indication: CONTRACEPTION
     Dosage: 1 DOSE(S), 3 IN 4 WEEK, TRANSDERMAL
     Route: 062
     Dates: start: 20030130
  2. TRIAMITRIM (ALL OTHER THERAPEUTIC PRODUCTS) [Concomitant]
  3. DIAZEPAM [Concomitant]
  4. MECLIZINE (MECLIZONE) [Concomitant]

REACTIONS (4)
  - BREAST DISCHARGE [None]
  - BREAST TENDERNESS [None]
  - DEPRESSED MOOD [None]
  - NIPPLE DISORDER [None]
